FAERS Safety Report 9527515 (Version 1)
Quarter: 2013Q1

REPORT INFORMATION
  Report Type: Spontaneous
  Country: US (occurrence: None)
  Receive Date: 20130314
  Receipt Date: 20130314
  Transmission Date: 20140127
  Serious: No
  Sender: FDA-Public Use
  Company Number: 1211USA005564

PATIENT
  Age: 63 Year
  Sex: Male

DRUGS (3)
  1. PEGINTRON [Suspect]
     Indication: HEPATITIS C
     Route: 058
     Dates: start: 20121028
  2. RIBAVIRIN (RIBAVIRIN) CAPSULE [Suspect]
     Indication: HEPATITIS C
     Route: 048
     Dates: start: 20121028
  3. VICTRELIS [Suspect]
     Indication: HEPATITIS C
     Route: 048
     Dates: start: 20121125

REACTIONS (12)
  - Injection site reaction [None]
  - Dysgeusia [None]
  - Anaemia [None]
  - Fatigue [None]
  - Disturbance in attention [None]
  - Pruritus [None]
  - Irritability [None]
  - Cough [None]
  - Dyspepsia [None]
  - Dysgeusia [None]
  - Rash [None]
  - Scratch [None]
